FAERS Safety Report 8658098 (Version 3)
Quarter: 2013Q2

REPORT INFORMATION
  Report Type: Spontaneous
  Country: FR (occurrence: FR)
  Receive Date: 20120710
  Receipt Date: 20130607
  Transmission Date: 20140414
  Serious: Yes (Hospitalization)
  Sender: FDA-Public Use
  Company Number: FR-PFIZER INC-2012160883

PATIENT
  Age: 76 Year
  Sex: Female

DRUGS (6)
  1. TAZOCILLINE [Suspect]
     Indication: PSEUDOMONAS INFECTION
     Dosage: PIPERACILLIN 4 G, TAZOBACTAM 0.5 G, 3X/DAY
     Route: 042
     Dates: start: 20120615
  2. FRAGMIN [Suspect]
     Indication: THROMBOSIS PROPHYLAXIS
     Dosage: 5000 IU, DAILY
     Route: 042
     Dates: start: 20120615
  3. CIFLOX [Suspect]
     Indication: PSEUDOMONAS INFECTION
     Dosage: 750 MG, 2X/DAY
     Route: 048
     Dates: start: 20120615, end: 20120618
  4. CORTANCYL [Suspect]
     Dosage: 5 MG, DAILY
     Route: 048
     Dates: start: 20120615
  5. TARDYFERON [Suspect]
     Indication: IRON DEFICIENCY ANAEMIA
     Dosage: 1 DF, DAILY
     Route: 048
     Dates: start: 20120615
  6. OROCAL VITAMIN D [Suspect]
     Indication: VITAMIN D DEFICIENCY
     Dosage: 2 DF, DAILY
     Route: 048
     Dates: start: 20120615

REACTIONS (3)
  - Transaminases increased [Recovered/Resolved]
  - Aspartate aminotransferase increased [None]
  - Alanine aminotransferase increased [None]
